FAERS Safety Report 19088138 (Version 1)
Quarter: 2021Q2

REPORT INFORMATION
  Report Type: Spontaneous
  Country: US (occurrence: US)
  Receive Date: 20210402
  Receipt Date: 20210402
  Transmission Date: 20210717
  Serious: Yes (Hospitalization, Other)
  Sender: FDA-Public Use
  Company Number: None

PATIENT
  Age: 66 Year
  Sex: Male
  Weight: 96.16 kg

DRUGS (17)
  1. ALFUZOSIN HCI ER 24?HR ? 10 MG [Suspect]
     Active Substance: ALFUZOSIN HYDROCHLORIDE
     Indication: PROSTATOMEGALY
     Route: 048
     Dates: start: 20210304, end: 20210305
  2. AMIODARONE [Concomitant]
     Active Substance: AMIODARONE
  3. AMLODOPINE BESYLATE [Concomitant]
     Active Substance: AMLODIPINE BESYLATE
  4. METFORMIN [Concomitant]
     Active Substance: METFORMIN HYDROCHLORIDE
  5. POTASSIUM CITRATE. [Concomitant]
     Active Substance: POTASSIUM CITRATE
  6. CIALIS [Concomitant]
     Active Substance: TADALAFIL
  7. SYNTHROID [Concomitant]
     Active Substance: LEVOTHYROXINE SODIUM
  8. PRAVASTATIN. [Concomitant]
     Active Substance: PRAVASTATIN
  9. RYBELSUS [Concomitant]
     Active Substance: SEMAGLUTIDE
  10. FUROSEMIDE. [Concomitant]
     Active Substance: FUROSEMIDE
  11. ACETAMINOPHEN. [Concomitant]
     Active Substance: ACETAMINOPHEN
  12. ASPERCREME W/ 4% LIDOCAINE [Concomitant]
  13. XARELTO [Concomitant]
     Active Substance: RIVAROXABAN
  14. METRPROLOL SUCCINATE [Concomitant]
  15. ALFUZOSIN HCI ER 24?HR ? 10 MG [Suspect]
     Active Substance: ALFUZOSIN HYDROCHLORIDE
     Indication: URINE OUTPUT DECREASED
     Route: 048
     Dates: start: 20210304, end: 20210305
  16. FARXIGA [Concomitant]
     Active Substance: DAPAGLIFLOZIN PROPANEDIOL
  17. CANDESARTIN [Concomitant]

REACTIONS (1)
  - Atrial fibrillation [None]

NARRATIVE: CASE EVENT DATE: 20210303
